FAERS Safety Report 20689944 (Version 1)
Quarter: 2022Q2

REPORT INFORMATION
  Report Type: Spontaneous
  Country: CN (occurrence: CN)
  Receive Date: 20220408
  Receipt Date: 20220408
  Transmission Date: 20220720
  Serious: Yes (Other)
  Sender: FDA-Public Use
  Company Number: CN-PFIZER INC-202200500936

PATIENT
  Age: 83 Year
  Sex: Female
  Weight: 65 kg

DRUGS (4)
  1. CELEBREX [Suspect]
     Active Substance: CELECOXIB
     Indication: Analgesic therapy
     Dosage: 0.2 G, 2X/DAY
     Route: 048
     Dates: start: 20220306, end: 20220306
  2. MULTIENZYME [Concomitant]
     Indication: Therapeutic procedure
     Dosage: 2 DF, 3X/DAY
     Route: 048
     Dates: start: 20220226, end: 20220307
  3. RUI QI [Concomitant]
     Indication: Gastrointestinal motility disorder
     Dosage: 5 MG, 1X/DAY
     Route: 048
     Dates: start: 20220226, end: 20220307
  4. SHU MI [Concomitant]
     Indication: Bowel movement irregularity
     Dosage: 0.6 MG, 1X/DAY
     Route: 048
     Dates: start: 20220225, end: 20220307

REACTIONS (3)
  - Pruritus [Recovered/Resolved]
  - Rash [Recovered/Resolved]
  - Flushing [Recovered/Resolved]

NARRATIVE: CASE EVENT DATE: 20220307
